FAERS Safety Report 14366891 (Version 2)
Quarter: 2018Q1

REPORT INFORMATION
  Report Type: Spontaneous
  Country: US (occurrence: US)
  Receive Date: 20180109
  Receipt Date: 20180111
  Transmission Date: 20180509
  Serious: Yes (Death)
  Sender: FDA-Public Use
  Company Number: US-PFIZER INC-2018006748

PATIENT

DRUGS (2)
  1. BUPIVACAINE HCL [Suspect]
     Active Substance: BUPIVACAINE HYDROCHLORIDE
     Indication: LABOUR PAIN
     Dosage: 20 ML, UNK
     Route: 064
  2. BUPIVACAINE HCL [Suspect]
     Active Substance: BUPIVACAINE HYDROCHLORIDE
     Indication: NERVE BLOCK

REACTIONS (2)
  - Cardiotoxicity [Fatal]
  - Product use in unapproved indication [Fatal]
